FAERS Safety Report 21545931 (Version 1)
Quarter: 2022Q4

REPORT INFORMATION
  Report Type: Spontaneous
  Country: PL (occurrence: PL)
  Receive Date: 20221103
  Receipt Date: 20221103
  Transmission Date: 20230112
  Serious: Yes (Other)
  Sender: FDA-Public Use
  Company Number: PL-SUN PHARMACEUTICAL INDUSTRIES LTD-2022R1-361916

PATIENT
  Age: 19 Year
  Sex: Female

DRUGS (1)
  1. AMPHETAMINE [Suspect]
     Active Substance: AMPHETAMINE
     Indication: Product used for unknown indication
     Dosage: UNK
     Route: 065

REACTIONS (6)
  - Overdose [Unknown]
  - Coma [Recovered/Resolved]
  - Quadriparesis [Recovered/Resolved]
  - Blindness cortical [Unknown]
  - Emotional disorder [Unknown]
  - Cognitive disorder [Unknown]
